FAERS Safety Report 6973730-5 (Version None)
Quarter: 2010Q3

REPORT INFORMATION
  Report Type: 
  Country: None (occurrence: None)
  Receive Date: 20100909
  Receipt Date: 20100901
  Transmission Date: 20110219
  Serious: Yes (Hospitalization)
  Sender: FDA-Public Use
  Company Number: A0737551A

PATIENT
  Age: 60 Year
  Sex: Female
  Weight: 109.1 kg

DRUGS (13)
  1. AVANDIA [Suspect]
     Route: 048
     Dates: start: 20040201, end: 20070501
  2. AVANDAMET [Suspect]
     Route: 048
  3. LASIX [Concomitant]
     Dates: start: 20040203
  4. FUROSEMIDE [Concomitant]
     Dates: start: 20040503
  5. TORSEMIDE [Concomitant]
     Dates: start: 20061113
  6. CELEBREX [Concomitant]
     Dates: start: 20040203
  7. NITROGLYCERIN [Concomitant]
     Dates: start: 20060830
  8. NITROCOR [Concomitant]
     Dates: start: 20060902
  9. ATENOLOL [Concomitant]
  10. LIPITOR [Concomitant]
  11. CIMETIDINE [Concomitant]
  12. NORVASC [Concomitant]
  13. ENALAPRIL [Concomitant]

REACTIONS (1)
  - MYOCARDIAL INFARCTION [None]
